FAERS Safety Report 24609920 (Version 1)
Quarter: 2024Q4

REPORT INFORMATION
  Report Type: Report from Study
  Country: CH (occurrence: CH)
  Receive Date: 20241112
  Receipt Date: 20241112
  Transmission Date: 20250115
  Serious: Yes (Other)
  Sender: INCYTE
  Company Number: CH-002147023-NVSC2024CH215318

PATIENT

DRUGS (1)
  1. RUXOLITINIB [Suspect]
     Active Substance: RUXOLITINIB
     Indication: Myelofibrosis
     Dosage: UNK AVERAGE LENGTH: 18 MONTHS
     Route: 065

REACTIONS (2)
  - Cytopenia [Unknown]
  - Treatment failure [Unknown]
